FAERS Safety Report 9117174 (Version 1)
Quarter: 2013Q1

REPORT INFORMATION
  Report Type: Spontaneous
  Country: AR (occurrence: AR)
  Receive Date: 20130225
  Receipt Date: 20130225
  Transmission Date: 20140127
  Serious: Yes (Death)
  Sender: FDA-Public Use
  Company Number: AR-JNJFOC-20130213223

PATIENT
  Sex: 0

DRUGS (3)
  1. DOXORUBICIN HYDROCHLORIDE [Suspect]
     Indication: HEPATIC CANCER
     Route: 042
  2. CISPLATIN [Suspect]
     Indication: HEPATIC CANCER
     Route: 065
  3. CISPLATIN [Suspect]
     Indication: HEPATOBLASTOMA
     Route: 065

REACTIONS (2)
  - Death [Fatal]
  - Off label use [Unknown]
